FAERS Safety Report 5257777-5 (Version None)
Quarter: 2007Q1

REPORT INFORMATION
  Report Type: 
  Country: None (occurrence: None)
  Receive Date: 20070307
  Receipt Date: 20070228
  Transmission Date: 20070707
  Serious: Yes (Other)
  Sender: FDA-Public Use
  Company Number: US-JNJFOC-20070300607

PATIENT
  Age: 43 Year
  Sex: Female
  Weight: 49.9 kg

DRUGS (7)
  1. TOPAMAX [Suspect]
     Route: 048
  2. TOPAMAX [Suspect]
     Indication: MIGRAINE PROPHYLAXIS
     Dosage: 25-75 MG/DAY.  1-3 25 MG TABLETS DAILY.
     Route: 048
  3. MULTI-VITAMIN [Concomitant]
     Indication: NUTRITIONAL SUPPORT
     Route: 048
  4. FIORICET [Concomitant]
     Indication: PAIN
     Route: 048
  5. CYMBALTA [Concomitant]
     Indication: PAIN
     Route: 048
  6. CYMBALTA [Concomitant]
     Indication: DEPRESSION
     Route: 048
  7. FLEXERIL [Concomitant]
     Indication: MUSCLE SPASMS

REACTIONS (5)
  - ALOPECIA [None]
  - ARRHYTHMIA [None]
  - ASTHENIA [None]
  - DRY MOUTH [None]
  - DYSPNOEA [None]
